FAERS Safety Report 17105754 (Version 2)
Quarter: 2020Q1

REPORT INFORMATION
  Report Type: Report from Study
  Country: IN (occurrence: IN)
  Receive Date: 20191203
  Receipt Date: 20200110
  Transmission Date: 20200409
  Serious: Yes (Death)
  Sender: FDA-Public Use
  Company Number: IN-ROCHE-2490342

PATIENT

DRUGS (1)
  1. RITUXIMAB. [Suspect]
     Active Substance: RITUXIMAB
     Indication: TRANSPLANT DYSFUNCTION
     Dosage: ONCE A WEEK FOR FOUR DOSES FOLLOWED BY 6 MONTHLY DOSES
     Route: 041

REACTIONS (1)
  - Cardiovascular disorder [Fatal]
